FAERS Safety Report 12735830 (Version 1)
Quarter: 2016Q3

REPORT INFORMATION
  Report Type: Spontaneous
  Country: GB (occurrence: GB)
  Receive Date: 20160912
  Receipt Date: 20160912
  Transmission Date: 20161109
  Serious: Yes (Other)
  Sender: FDA-Public Use
  Company Number: GB-WEST-WARD PHARMACEUTICALS CORP.-GB-H14001-16-01797

PATIENT
  Age: 35 Year
  Sex: Male

DRUGS (2)
  1. METRONIDAZOLE. [Suspect]
     Active Substance: METRONIDAZOLE
     Indication: ABDOMINAL INFECTION
     Route: 065
     Dates: start: 20160809, end: 201608
  2. CO-AMOXICLAV [Suspect]
     Active Substance: AMOXICILLIN\CLAVULANIC ACID
     Indication: ABDOMINAL INFECTION
     Route: 065
     Dates: start: 20160816

REACTIONS (5)
  - Penile burning sensation [Unknown]
  - Penile swelling [Unknown]
  - Disturbance in sexual arousal [Unknown]
  - Condition aggravated [Unknown]
  - Candida infection [Unknown]

NARRATIVE: CASE EVENT DATE: 201608
